FAERS Safety Report 6610249-5 (Version None)
Quarter: 2010Q1

REPORT INFORMATION
  Report Type: 
  Country: None (occurrence: None)
  Receive Date: 20100302
  Receipt Date: 20100223
  Transmission Date: 20100710
  Serious: Yes (Other)
  Sender: FDA-Public Use
  Company Number: US-MERCK-1002USA01549

PATIENT
  Age: 71 Year
  Sex: Female

DRUGS (6)
  1. INVANZ [Suspect]
     Indication: LYME DISEASE
     Route: 042
     Dates: start: 20091013, end: 20091026
  2. INVANZ [Suspect]
     Route: 042
     Dates: start: 20091110, end: 20091124
  3. INVANZ [Suspect]
     Route: 030
     Dates: start: 20100113, end: 20100126
  4. INVANZ [Suspect]
     Indication: CAT SCRATCH DISEASE
     Route: 042
     Dates: start: 20091013, end: 20091026
  5. INVANZ [Suspect]
     Route: 042
     Dates: start: 20091110, end: 20091124
  6. INVANZ [Suspect]
     Route: 030
     Dates: start: 20100113, end: 20100126

REACTIONS (3)
  - ALANINE AMINOTRANSFERASE INCREASED [None]
  - ASPARTATE AMINOTRANSFERASE INCREASED [None]
  - HEPATITIS C POSITIVE [None]
